FAERS Safety Report 14557559 (Version 7)
Quarter: 2018Q3

REPORT INFORMATION
  Report Type: Report from Study
  Country: AT (occurrence: AT)
  Receive Date: 20180221
  Receipt Date: 20180820
  Transmission Date: 20181010
  Serious: Yes (Other)
  Sender: FDA-Public Use
  Company Number: AT-SA-2018SA039449

PATIENT
  Age: 77 Year
  Sex: Male
  Weight: 80 kg

DRUGS (3)
  1. CABAZITAXEL [Suspect]
     Active Substance: CABAZITAXEL
     Dosage: 47.63 MG,UNK
     Route: 051
     Dates: start: 20171114, end: 20171114
  2. CABAZITAXEL [Suspect]
     Active Substance: CABAZITAXEL
     Dosage: 47.63 MG,UNK
     Route: 065
     Dates: start: 20180118, end: 20180118
  3. PREDNISOLONE. [Suspect]
     Active Substance: PREDNISOLONE
     Dosage: 10 MG,QD
     Route: 065
     Dates: start: 20171114, end: 20180207

REACTIONS (3)
  - Alanine aminotransferase increased [Recovered/Resolved]
  - Gamma-glutamyltransferase increased [Recovered/Resolved with Sequelae]
  - Aspartate aminotransferase increased [Recovered/Resolved]

NARRATIVE: CASE EVENT DATE: 20180207
